FAERS Safety Report 9514234 (Version 1)
Quarter: 2013Q3

REPORT INFORMATION
  Report Type: Spontaneous
  Country: US (occurrence: US)
  Receive Date: 20130910
  Receipt Date: 20130910
  Transmission Date: 20140515
  Serious: No
  Sender: FDA-Public Use
  Company Number: -SAAVPROD-BMS19055201

PATIENT
  Age: 5 None
  Sex: Male

DRUGS (1)
  1. IRBESARTAN TABS 300 MG [Suspect]
     Dosage: SWITCHED TO 150MG 2/D

REACTIONS (1)
  - Blood pressure inadequately controlled [Unknown]
